FAERS Safety Report 6946588-8 (Version None)
Quarter: 2010Q3

REPORT INFORMATION
  Report Type: 
  Country: None (occurrence: None)
  Receive Date: 20100824
  Receipt Date: 20100811
  Transmission Date: 20110219
  Serious: Yes (Life-Threatening, Hospitalization, Other)
  Sender: FDA-Public Use
  Company Number: 2010AC000055

PATIENT
  Age: 52 Year
  Sex: Female

DRUGS (128)
  1. DIGOXIN [Suspect]
     Indication: CARDIAC FAILURE CONGESTIVE
     Dosage: 0.25 MG; QD; PO
     Route: 048
     Dates: start: 20000101, end: 20090428
  2. DIGOXIN [Suspect]
     Dosage: 0.25 MG; QD; PO
     Route: 048
     Dates: start: 19990408, end: 20050708
  3. DIGOXIN [Suspect]
     Dosage: 0.125 MG; QD; PO
     Route: 048
     Dates: start: 20050710, end: 20050801
  4. DIGOXIN [Suspect]
     Dosage: 0.25 MG; QD; PO
     Route: 048
     Dates: start: 20050801, end: 20080314
  5. DIGOXIN [Suspect]
     Dosage: 0.125 MG; QD; PO
     Route: 048
     Dates: start: 20080316, end: 20080501
  6. DIGOXIN [Suspect]
     Dosage: 0.25 MG; QD; PO
     Route: 048
     Dates: start: 20080501
  7. VI-Q-TUSS SYRUP [Concomitant]
  8. LASIX [Concomitant]
  9. COREG [Concomitant]
  10. LANTUS [Concomitant]
  11. DIOVAN [Concomitant]
  12. LIPITOR [Concomitant]
  13. ALLEGRA [Concomitant]
  14. XANAX [Concomitant]
  15. MULTI-VITAMIN [Concomitant]
  16. ASPIRIN [Concomitant]
  17. EFFEXOR [Concomitant]
  18. FLEXERIL [Concomitant]
  19. METANX [Concomitant]
  20. NIACIN [Concomitant]
  21. IBUPROFEN [Concomitant]
  22. ALDACTONE [Concomitant]
  23. PRILOSEC [Concomitant]
  24. COZAAR [Concomitant]
  25. CELEXA [Concomitant]
  26. HUMULIN R [Concomitant]
  27. OPTIVA [Concomitant]
  28. REFRESH [Concomitant]
  29. DIPHEN/ATROP [Concomitant]
  30. HYOSCYAMINE [Concomitant]
  31. CEPHALEXIN [Concomitant]
  32. AMOXICILLIN [Concomitant]
  33. GUAIFENEX [Concomitant]
  34. HYDROCODONE [Concomitant]
  35. HUMALOG [Concomitant]
  36. ACULAR [Concomitant]
  37. CLINDAMYCIN [Concomitant]
  38. MYTUSSIN [Concomitant]
  39. PROLIX [Concomitant]
  40. ZITHROMAX [Concomitant]
  41. ALPRAZOLAM [Concomitant]
  42. HYDROXYZ HCL [Concomitant]
  43. ZYRTEC [Concomitant]
  44. FLAVOXATE [Concomitant]
  45. PREMARIN [Concomitant]
  46. LEVAQUIN [Concomitant]
  47. NASONEX [Concomitant]
  48. CLONAZEPAM [Concomitant]
  49. NITROFURANTOIN [Concomitant]
  50. MECLIZINE [Concomitant]
  51. TRIMETHOBENZ [Concomitant]
  52. KETEK [Concomitant]
  53. NITROFUR [Concomitant]
  54. TERCONAZOLE [Concomitant]
  55. CLINDESSE [Concomitant]
  56. METANK [Concomitant]
  57. TRIMETHOPRIM [Concomitant]
  58. PROPO-N/APAP [Concomitant]
  59. ERYTHROMYCIN [Concomitant]
  60. GUIADEX [Concomitant]
  61. CYCLOBENZAPR [Concomitant]
  62. METANX [Concomitant]
  63. PREDNISOLONE [Concomitant]
  64. BACITRACIN [Concomitant]
  65. FLUCONAZOLE [Concomitant]
  66. DOXYCYCL HYC [Concomitant]
  67. PROCHLORPER [Concomitant]
  68. UROXATRAL [Concomitant]
  69. CLARITHROMYCIN [Concomitant]
  70. J-TAN D [Concomitant]
  71. SINGULAIR [Concomitant]
  72. VERAMYST [Concomitant]
  73. NEVANAC [Concomitant]
  74. VIVELLE-DOT [Concomitant]
  75. PROMETRIUM [Concomitant]
  76. ARMOUR [Concomitant]
  77. LOTREL [Concomitant]
  78. ACULAR [Concomitant]
  79. ACTOS [Concomitant]
  80. VAZOTAN [Concomitant]
  81. PROVENTIL [Concomitant]
  82. AZOR [Concomitant]
  83. RESTASIS [Concomitant]
  84. DIAMOX SRC [Concomitant]
  85. LOTEMAX [Concomitant]
  86. RISAQUAD [Concomitant]
  87. NITROFUR [Concomitant]
  88. VENLAFAXINE [Concomitant]
  89. EFFEXOR [Concomitant]
  90. REFRESH [Concomitant]
  91. METHYLPRED [Concomitant]
  92. CHERATTUSIN [Concomitant]
  93. BENICAR [Concomitant]
  94. FLAVOXATE [Concomitant]
  95. ODANSETRON [Concomitant]
  96. TERBINAFINE HCL [Concomitant]
  97. TAMIFLU [Concomitant]
  98. MACRODANTIN [Concomitant]
  99. SIPRONOLACTONE [Concomitant]
  100. CALCIUM [Concomitant]
  101. FLOMAX [Concomitant]
  102. UROXATRAL [Concomitant]
  103. RESTASIS [Concomitant]
  104. METFORMIN [Concomitant]
  105. ASPIRIN [Concomitant]
  106. COREG [Concomitant]
  107. DIOVAN [Concomitant]
  108. EFFEXOR [Concomitant]
  109. FUROSEMIDE [Concomitant]
  110. LANTUS [Concomitant]
  111. LIPITOR [Concomitant]
  112. METANX [Concomitant]
  113. NOVOLOG [Concomitant]
  114. ACCUPRIL [Concomitant]
  115. CITRACAL [Concomitant]
  116. COQ 10 [Concomitant]
  117. VITAMIN E [Concomitant]
  118. VERAPAMIL [Concomitant]
  119. AMBIEN [Concomitant]
  120. DAYPRO [Concomitant]
  121. PROPULSID [Concomitant]
  122. TUMS [Concomitant]
  123. AUGMENTIN '125' [Concomitant]
  124. PHENERGAN [Concomitant]
  125. LORTAB [Concomitant]
  126. ZOFRAN [Concomitant]
  127. CLONIDINE [Concomitant]
  128. REGLAN [Concomitant]

REACTIONS (59)
  - ANGIOMYOLIPOMA [None]
  - ANXIETY [None]
  - ASTHENIA [None]
  - ATRIAL FLUTTER [None]
  - BACK PAIN [None]
  - BLINDNESS UNILATERAL [None]
  - BLISTER [None]
  - BLOOD POTASSIUM DECREASED [None]
  - BUNDLE BRANCH BLOCK LEFT [None]
  - CARDIAC FAILURE CONGESTIVE [None]
  - CATARACT [None]
  - CHOLELITHIASIS [None]
  - CONGESTIVE CARDIOMYOPATHY [None]
  - CORNEAL ABRASION [None]
  - CULTURE URINE POSITIVE [None]
  - DEHYDRATION [None]
  - DIABETES MELLITUS INADEQUATE CONTROL [None]
  - DRY EYE [None]
  - ECONOMIC PROBLEM [None]
  - ESCHERICHIA INFECTION [None]
  - EYE INJURY [None]
  - EYELID PTOSIS [None]
  - FEELING ABNORMAL [None]
  - FOOT FRACTURE [None]
  - GASTROENTERITIS VIRAL [None]
  - GOITRE [None]
  - HYPERHIDROSIS [None]
  - HYPERKERATOSIS [None]
  - HYPERTENSION [None]
  - HYPOTENSION [None]
  - ILL-DEFINED DISORDER [None]
  - IRITIS [None]
  - MELANOCYTIC NAEVUS [None]
  - MITRAL VALVE INCOMPETENCE [None]
  - MULTIPLE INJURIES [None]
  - MUSCLE SPASMS [None]
  - NAIL DYSTROPHY [None]
  - NEUROPATHY PERIPHERAL [None]
  - ONYCHOMYCOSIS [None]
  - ORTHOSTATIC HYPOTENSION [None]
  - PAIN [None]
  - RETINAL DETACHMENT [None]
  - SEBORRHOEIC KERATOSIS [None]
  - SINUS BRADYCARDIA [None]
  - SINUSITIS [None]
  - STAPHYLOCOCCAL INFECTION [None]
  - TELANGIECTASIA [None]
  - TENOSYNOVITIS [None]
  - THERAPEUTIC AGENT TOXICITY [None]
  - TRICUSPID VALVE INCOMPETENCE [None]
  - ULCER [None]
  - ULCERATIVE KERATITIS [None]
  - URINARY RETENTION [None]
  - URINARY TRACT INFECTION [None]
  - URINE ODOUR ABNORMAL [None]
  - UVEITIS [None]
  - VENTRICULAR TACHYCARDIA [None]
  - VIRAL INFECTION [None]
  - WHITE BLOOD CELL COUNT INCREASED [None]
